FAERS Safety Report 18344758 (Version 1)
Quarter: 2020Q4

REPORT INFORMATION
  Report Type: Report from Study
  Country: BR (occurrence: BR)
  Receive Date: 20201005
  Receipt Date: 20201005
  Transmission Date: 20210114
  Serious: Yes (Other)
  Sender: FDA-Public Use
  Company Number: BR-UCBSA-2020038432

PATIENT
  Sex: Female
  Weight: 100 kg

DRUGS (2)
  1. NAPROXENO [NAPROXEN] [Concomitant]
     Active Substance: NAPROXEN
     Indication: ANALGESIC THERAPY
     Dosage: 550 MILLIGRAM, UNK
     Route: 048
     Dates: start: 202002
  2. CERTOLIZUMAB PEGOL [Suspect]
     Active Substance: CERTOLIZUMAB PEGOL
     Indication: ANKYLOSING SPONDYLITIS
     Dosage: 200 MILLIGRAM, EV 15 DAYS
     Route: 058
     Dates: start: 201810, end: 202009

REACTIONS (4)
  - Drug ineffective [Unknown]
  - Mass [Recovering/Resolving]
  - Arthralgia [Recovering/Resolving]
  - Joint swelling [Recovering/Resolving]

NARRATIVE: CASE EVENT DATE: 2020
